FAERS Safety Report 7207052-4 (Version None)
Quarter: 2011Q1

REPORT INFORMATION
  Report Type: 
  Country: None (occurrence: None)
  Receive Date: 20110103
  Receipt Date: 20101220
  Transmission Date: 20110831
  Serious: Yes (Other)
  Sender: FDA-Public Use
  Company Number: B0690913A

PATIENT
  Age: 13 Year
  Sex: Male

DRUGS (4)
  1. NELARABINE [Suspect]
     Dosage: 650MGM2 PER DAY
     Route: 042
  2. NELARABINE [Suspect]
     Dosage: 650MGM2 PER DAY
     Route: 042
  3. NELARABINE [Suspect]
     Dosage: 650MGM2 PER DAY
     Route: 042
  4. NELARABINE [Suspect]
     Dosage: 650MGM2 PER DAY
     Route: 042

REACTIONS (1)
  - BONE MARROW FAILURE [None]
